FAERS Safety Report 24872131 (Version 4)
Quarter: 2025Q1

REPORT INFORMATION
  Report Type: Spontaneous
  Country: US (occurrence: US)
  Receive Date: 20250122
  Receipt Date: 20250227
  Transmission Date: 20250409
  Serious: Yes (Other)
  Sender: AUROBINDO
  Company Number: US-AUROBINDO-AUR-APL-2025-003143

PATIENT
  Age: 7 Decade
  Sex: Male

DRUGS (3)
  1. PREDNISONE [Suspect]
     Active Substance: PREDNISONE
     Indication: Subacute cutaneous lupus erythematosus
     Route: 065
  2. TOFACITINIB [Suspect]
     Active Substance: TOFACITINIB
     Indication: Subacute cutaneous lupus erythematosus
     Route: 065
  3. ANIFROLUMAB [Concomitant]
     Active Substance: ANIFROLUMAB
     Indication: Subacute cutaneous lupus erythematosus
     Route: 065

REACTIONS (8)
  - Pulmonary embolism [Unknown]
  - Cataract [Unknown]
  - Anaemia macrocytic [Unknown]
  - Liver function test increased [Unknown]
  - Disease progression [Unknown]
  - Weight increased [Unknown]
  - Skin fragility [Unknown]
  - Gastrooesophageal reflux disease [Unknown]
